FAERS Safety Report 4742962-9 (Version None)
Quarter: 2005Q3

REPORT INFORMATION
  Report Type: 
  Country: None (occurrence: None)
  Receive Date: 20050804
  Receipt Date: 20050421
  Transmission Date: 20060218
  Serious: No
  Sender: FDA-Public Use
  Company Number: FACT0500370

PATIENT
  Age: 47 Year
  Sex: Female
  Weight: 74.8 kg

DRUGS (4)
  1. FACTIVE [Suspect]
     Indication: RESPIRATORY TRACT INFECTION BACTERIAL
     Dosage: 320 MG, QD, ORAL
     Route: 048
     Dates: start: 20050411, end: 20050415
  2. DESOGEN (DOFAMINUM CHLORIDE) [Concomitant]
  3. MULTIVITAMINS (ASCORBIC ACID) [Concomitant]
  4. SUDAFED (PSEUDOEPHEDRINE HYDROCHLORIDE) [Concomitant]

REACTIONS (1)
  - RASH GENERALISED [None]
